FAERS Safety Report 5887031-X (Version None)
Quarter: 2008Q3

REPORT INFORMATION
  Report Type: 
  Country: None (occurrence: None)
  Receive Date: 20080917
  Receipt Date: 20080911
  Transmission Date: 20090109
  Serious: Yes (Death)
  Sender: FDA-Public Use
  Company Number: FR-PFIZER INC-2008077054

PATIENT
  Sex: Male

DRUGS (12)
  1. XANAX [Suspect]
     Indication: PSYCHOTIC DISORDER
     Route: 048
     Dates: start: 20080718
  2. ATARAX [Suspect]
     Indication: PSYCHOTIC DISORDER
     Dosage: DAILY DOSE:100MG
     Dates: start: 20080621
  3. AMOXICILLIN + CLAVULANATE POTASSIUM [Suspect]
     Indication: PNEUMONIA ASPIRATION
     Route: 048
     Dates: start: 20080622, end: 20080630
  4. ABILIFY [Suspect]
     Indication: PSYCHOTIC DISORDER
     Route: 048
     Dates: start: 20080715
  5. TERCIAN [Suspect]
     Indication: PSYCHOTIC DISORDER
     Route: 048
     Dates: start: 20080718
  6. SOLIAN [Suspect]
     Indication: PSYCHOTIC DISORDER
     Route: 048
     Dates: start: 20080621
  7. LEPTICUR [Suspect]
     Indication: PSYCHOTIC DISORDER
     Route: 048
     Dates: start: 20080621
  8. LOXAPINE [Suspect]
     Indication: PSYCHOTIC DISORDER
     Dates: start: 20080703
  9. ACETAMINOPHEN [Concomitant]
     Route: 048
     Dates: start: 20080622, end: 20080625
  10. KETOPROFEN [Concomitant]
     Dates: start: 20080622, end: 20080626
  11. PHLOROGLUCINOL [Concomitant]
     Dates: start: 20080626, end: 20080101
  12. ALBUTEROL [Concomitant]
     Route: 055
     Dates: start: 20080629, end: 20080101

REACTIONS (6)
  - DEATH [None]
  - DIARRHOEA INFECTIOUS [None]
  - ENTEROCOLITIS [None]
  - LEUKOCYTOSIS [None]
  - RENAL FAILURE ACUTE [None]
  - SEPSIS [None]
